FAERS Safety Report 4439857-7 (Version None)
Quarter: 2004Q3

REPORT INFORMATION
  Report Type: 
  Country: None (occurrence: None)
  Receive Date: 20040902
  Receipt Date: 20040827
  Transmission Date: 20050211
  Serious: Yes (Death, Hospitalization)
  Sender: FDA-Public Use
  Company Number: US-ROCHE-378931

PATIENT
  Age: 41 Year
  Sex: Female

DRUGS (3)
  1. CAPECITABINE [Suspect]
     Indication: GASTRIC CANCER
     Route: 048
     Dates: start: 20040616, end: 20040706
  2. ENZASTAURIN [Suspect]
     Indication: GASTRIC CANCER
     Route: 048
     Dates: start: 20040609, end: 20040706
  3. VICODIN [Concomitant]

REACTIONS (6)
  - CACHEXIA [None]
  - DIARRHOEA [None]
  - FATIGUE [None]
  - HYPOTENSION [None]
  - INTESTINAL PERFORATION [None]
  - METABOLIC ACIDOSIS [None]
